FAERS Safety Report 25108061 (Version 4)
Quarter: 2025Q3

REPORT INFORMATION
  Report Type: Spontaneous
  Country: US (occurrence: US)
  Receive Date: 20250322
  Receipt Date: 20250719
  Transmission Date: 20251020
  Serious: No
  Sender: SANOFI AVENTIS
  Company Number: US-SA-2025SA082120

PATIENT
  Age: 60 Year
  Sex: Female
  Weight: 68.18 kg

DRUGS (19)
  1. DUPIXENT [Suspect]
     Active Substance: DUPILUMAB
     Indication: Dermatitis atopic
     Dosage: 300 MG, QOW
     Route: 058
     Dates: end: 202412
  2. DUPIXENT [Suspect]
     Active Substance: DUPILUMAB
     Indication: Dermatitis atopic
  3. MIRALAX [Concomitant]
     Active Substance: POLYETHYLENE GLYCOL 3350
  4. TRAZODONE HYDROCHLORIDE [Concomitant]
     Active Substance: TRAZODONE HYDROCHLORIDE
  5. MICARDIS [Concomitant]
     Active Substance: TELMISARTAN
  6. ESTRACE [Concomitant]
     Active Substance: ESTRADIOL
  7. CITALOPRAM HYDROBROMIDE [Concomitant]
     Active Substance: CITALOPRAM HYDROBROMIDE
  8. ELETRIPTAN HYDROBROMIDE [Concomitant]
     Active Substance: ELETRIPTAN HYDROBROMIDE
  9. LYRICA [Concomitant]
     Active Substance: PREGABALIN
  10. LIPITOR [Concomitant]
     Active Substance: ATORVASTATIN CALCIUM
  11. BONIVA [Concomitant]
     Active Substance: IBANDRONATE SODIUM
  12. CYMBALTA [Concomitant]
     Active Substance: DULOXETINE HYDROCHLORIDE
  13. TRIAMCINOLONE ACETONIDE [Concomitant]
     Active Substance: TRIAMCINOLONE ACETONIDE
  14. NITROGLYCERIN [Concomitant]
     Active Substance: NITROGLYCERIN
  15. TACROLIMUS [Concomitant]
     Active Substance: TACROLIMUS
  16. TELMISARTAN [Concomitant]
     Active Substance: TELMISARTAN
  17. ARIPIPRAZOLE [Concomitant]
     Active Substance: ARIPIPRAZOLE
  18. MECLIZINE [Concomitant]
     Active Substance: MECLIZINE HYDROCHLORIDE
  19. DULOXETINE [Concomitant]
     Active Substance: DULOXETINE

REACTIONS (6)
  - Rebound eczema [Unknown]
  - Skin haemorrhage [Not Recovered/Not Resolved]
  - Sleep disorder due to a general medical condition [Unknown]
  - Depression [Unknown]
  - Back pain [Unknown]
  - Pain of skin [Unknown]

NARRATIVE: CASE EVENT DATE: 20250201
